FAERS Safety Report 11407025 (Version 1)
Quarter: 2015Q3

REPORT INFORMATION
  Report Type: Spontaneous
  Country: US (occurrence: US)
  Receive Date: 20150821
  Receipt Date: 20150821
  Transmission Date: 20151125
  Serious: Yes (Death)
  Sender: FDA-Public Use
  Company Number: US-UNICHEM LABORATORIES LIMITED-UCM201508-000616

PATIENT
  Age: 42 Year
  Sex: Male
  Weight: 85.28 kg

DRUGS (1)
  1. HYDROCHLOROTHIAZIDE. [Suspect]
     Active Substance: HYDROCHLOROTHIAZIDE
     Indication: HYPERTENSION
     Route: 048
     Dates: start: 201506

REACTIONS (1)
  - Cardiac tamponade [Fatal]

NARRATIVE: CASE EVENT DATE: 20150803
